FAERS Safety Report 8819079 (Version 2)
Quarter: 2012Q4

REPORT INFORMATION
  Report Type: Report from Study
  Country: US (occurrence: US)
  Receive Date: 20121001
  Receipt Date: 20121026
  Transmission Date: 20130627
  Serious: Yes (Hospitalization)
  Sender: FDA-Public Use
  Company Number: US-JNJFOC-20120910980

PATIENT
  Sex: Male
  Weight: 87.23 kg

DRUGS (8)
  1. REMICADE [Suspect]
     Indication: PSORIATIC ARTHROPATHY
     Route: 042
     Dates: start: 20121004, end: 20121004
  2. REMICADE [Suspect]
     Indication: PSORIATIC ARTHROPATHY
     Dosage: started about 4 years, possibly in 2009
     Route: 042
     Dates: start: 2009
  3. LISINOPRIL [Concomitant]
     Indication: HYPERTENSION
     Route: 065
  4. BENTYL [Concomitant]
     Indication: IRRITABLE BOWEL SYNDROME
     Route: 065
  5. OXYBUTYNIN [Concomitant]
     Indication: BLADDER DISORDER
     Route: 065
  6. PRILOSEC [Concomitant]
     Indication: GASTROOESOPHAGEAL REFLUX DISEASE
     Route: 065
  7. CALCIUM [Concomitant]
     Indication: BONE DISORDER
     Route: 065
  8. VITAMIN D [Concomitant]
     Indication: BONE DISORDER
     Route: 065

REACTIONS (5)
  - Cellulitis [Recovering/Resolving]
  - Infection [Recovering/Resolving]
  - Mass [Recovered/Resolved]
  - Tooth abscess [Recovered/Resolved]
  - Arthropod bite [Not Recovered/Not Resolved]
